FAERS Safety Report 5710883-0 (Version None)
Quarter: 2008Q2

REPORT INFORMATION
  Report Type: 
  Country: None (occurrence: None)
  Receive Date: 20080421
  Receipt Date: 20080415
  Transmission Date: 20081010
  Serious: Yes (Death, Other)
  Sender: FDA-Public Use
  Company Number: PHHY2008AU05370

PATIENT
  Sex: Female

DRUGS (1)
  1. PAMIDRONATE DISODIUM [Suspect]
     Indication: METASTASES TO BONE

REACTIONS (4)
  - DEATH [None]
  - MOUTH ULCERATION [None]
  - OSTEONECROSIS [None]
  - TOOTH EXTRACTION [None]
